FAERS Safety Report 14080112 (Version 1)
Quarter: 2017Q4

REPORT INFORMATION
  Report Type: Report from Study
  Country: MX (occurrence: MX)
  Receive Date: 20171012
  Receipt Date: 20171012
  Transmission Date: 20180321
  Serious: Yes (Death, Other)
  Sender: FDA-Public Use
  Company Number: MX-INCYTE CORPORATION-2017IN008430

PATIENT

DRUGS (1)
  1. JAKAVI [Suspect]
     Active Substance: RUXOLITINIB
     Indication: INJECTION SITE DISCOMFORT
     Dosage: 4 DF, QD
     Route: 065
     Dates: start: 201704, end: 201704

REACTIONS (2)
  - Product use in unapproved indication [Recovered/Resolved]
  - Pneumonia [Fatal]

NARRATIVE: CASE EVENT DATE: 201704
